FAERS Safety Report 8834025 (Version 1)
Quarter: 2012Q4

REPORT INFORMATION
  Report Type: Spontaneous
  Country: US (occurrence: None)
  Receive Date: 20121010
  Receipt Date: 20121010
  Transmission Date: 20130627
  Serious: Yes (Other)
  Sender: FDA-Public Use
  Company Number: None

PATIENT
  Age: 25 Year
  Sex: Female
  Weight: 49.44 kg

DRUGS (1)
  1. PARAGARD [Suspect]
     Dates: start: 20070305, end: 20080901

REACTIONS (6)
  - Pain [None]
  - Ovarian cyst [None]
  - Endometriosis [None]
  - Adhesion [None]
  - Uterine disorder [None]
  - No therapeutic response [None]
